FAERS Safety Report 12016244 (Version 1)
Quarter: 2016Q1

REPORT INFORMATION
  Report Type: Spontaneous
  Country: US (occurrence: US)
  Receive Date: 20160205
  Receipt Date: 20160205
  Transmission Date: 20160526
  Serious: No
  Sender: FDA-Public Use
  Company Number: US-AMGEN-USASP2015117123

PATIENT
  Age: 84 Year
  Sex: Female

DRUGS (1)
  1. NEULASTA [Suspect]
     Active Substance: PEGFILGRASTIM
     Indication: PRODUCT USED FOR UNKNOWN INDICATION
     Dosage: UNK
     Route: 065

REACTIONS (7)
  - Drug dose omission [Unknown]
  - Application site haemorrhage [Not Recovered/Not Resolved]
  - Device issue [Unknown]
  - Hypertension [Not Recovered/Not Resolved]
  - Vaginal haemorrhage [Unknown]
  - Oropharyngeal pain [Unknown]
  - Vulvovaginal pruritus [Unknown]

NARRATIVE: CASE EVENT DATE: 201511
